FAERS Safety Report 22624930 (Version 1)
Quarter: 2023Q2

REPORT INFORMATION
  Report Type: Spontaneous
  Country: US (occurrence: None)
  Receive Date: 20230620
  Receipt Date: 20230620
  Transmission Date: 20230722
  Serious: Yes (Other)
  Sender: FDA-Public Use
  Company Number: None

PATIENT
  Age: 47 Year
  Sex: Female
  Weight: 145.8 kg

DRUGS (4)
  1. OZEMPIC [Suspect]
     Active Substance: SEMAGLUTIDE
     Indication: Diabetes mellitus
     Dosage: OTHER QUANTITY : 1 3MI OZEMPIC INJ;?OTHER FREQUENCY : WEEKLY;?OTHER ROUTE : INJECTION;?
     Route: 050
     Dates: start: 20230615, end: 20230615
  2. JARDIANCE [Concomitant]
     Active Substance: EMPAGLIFLOZIN
  3. Herbalife herbal tea [Concomitant]
  4. FIBER [Concomitant]

REACTIONS (9)
  - Pruritus [None]
  - Injection site swelling [None]
  - Throat irritation [None]
  - Oropharyngeal pain [None]
  - Pain in extremity [None]
  - Abdominal pain upper [None]
  - Diarrhoea [None]
  - Near death experience [None]
  - Fatigue [None]

NARRATIVE: CASE EVENT DATE: 20230615
